FAERS Safety Report 16525623 (Version 2)
Quarter: 2019Q3

REPORT INFORMATION
  Report Type: Spontaneous
  Country: US (occurrence: US)
  Receive Date: 20190703
  Receipt Date: 20190731
  Transmission Date: 20191004
  Serious: No
  Sender: FDA-Public Use
  Company Number: US-SA-2019SA176967

PATIENT
  Age: 69 Year
  Sex: Female
  Weight: 66.2 kg

DRUGS (23)
  1. DUPIXENT [Suspect]
     Active Substance: DUPILUMAB
     Indication: DERMATITIS ATOPIC
     Dosage: 600 MG, 1X
     Route: 058
     Dates: start: 20190610, end: 20190610
  2. CERAMAX [Concomitant]
     Dosage: SKIN BARRIER CREAM
  3. HALOBETASOL PROPIONATE. [Concomitant]
     Active Substance: HALOBETASOL PROPIONATE
  4. CEPHALEXIN HCL [Concomitant]
     Active Substance: CEPHALEXIN HYDROCHLORIDE
     Dosage: UNK UNK, BID
  5. CORDRAN [Concomitant]
     Active Substance: FLURANDRENOLIDE
     Dosage: TAPE, 4 MCG/SQ CM
  6. EPICERAM [Concomitant]
     Active Substance: DEVICE
     Dosage: UNK UNK, BID, FORMULATION: SKIN BARRIER EMULSION
     Route: 061
  7. LEVOTHYROXINE. [Concomitant]
     Active Substance: LEVOTHYROXINE
     Dosage: 1 DF, QD
  8. CORDRAN [Concomitant]
     Active Substance: FLURANDRENOLIDE
  9. TRIANEX [Concomitant]
     Active Substance: TRIAMCINOLONE ACETONIDE
     Dosage: UNK UNK, TID
     Route: 061
  10. FOSAMAX [Concomitant]
     Active Substance: ALENDRONATE SODIUM
     Dosage: 1 DF, QD
  11. XYZAL [Concomitant]
     Active Substance: LEVOCETIRIZINE DIHYDROCHLORIDE
     Dosage: UNK UNK, HS
  12. ALEVICYN DERMAL SPRAY [Concomitant]
  13. HYLATOPICPLUS [Concomitant]
     Active Substance: EMOLLIENTS
     Dosage: EMOLLIENT FOAM
  14. EUCRISA [Concomitant]
     Active Substance: CRISABOROLE
     Dosage: UNK UNK, BID
     Route: 061
  15. DOXYCYCLINE HYCLATE. [Concomitant]
     Active Substance: DOXYCYCLINE HYCLATE
     Dosage: 1 DF, QD
  16. DUPIXENT [Suspect]
     Active Substance: DUPILUMAB
     Dosage: 300 MG QOW
     Route: 058
     Dates: start: 201906
  17. SERNIVO [Concomitant]
     Active Substance: BETAMETHASONE DIPROPIONATE
     Dosage: UNK, BID, SPRAY
     Route: 061
  18. OLMESARTAN MEDOXOMIL. [Concomitant]
     Active Substance: OLMESARTAN MEDOXOMIL
     Dosage: 1 DF, QD
  19. HYDROXYZINE HYDROCHLORIDE. [Concomitant]
     Active Substance: HYDROXYZINE HYDROCHLORIDE
  20. ZITHROMAX [Concomitant]
     Active Substance: AZITHROMYCIN DIHYDRATE
  21. JUBLIA [Concomitant]
     Active Substance: EFINACONAZOLE
     Dosage: UNK UNK, QD; TOPICAL SOLUTION, APPLIED TO NAILS
     Route: 061
  22. HYDROXYZINE [Concomitant]
     Active Substance: HYDROXYZINE HYDROCHLORIDE
     Indication: PRURITUS
     Dosage: UNK UNK, PRN (1/4 TO 1/2 TSP TID)
  23. CEFDINIR. [Concomitant]
     Active Substance: CEFDINIR

REACTIONS (1)
  - Vision blurred [Recovered/Resolved]

NARRATIVE: CASE EVENT DATE: 20190618
